FAERS Safety Report 8555070-6 (Version None)
Quarter: 2012Q3

REPORT INFORMATION
  Report Type: 
  Country: None (occurrence: None)
  Receive Date: 20120731
  Receipt Date: 20120723
  Transmission Date: 20120928
  Serious: Yes (Other)
  Sender: FDA-Public Use
  Company Number: US-BAXTER-2012BAX009240

PATIENT
  Sex: Female

DRUGS (4)
  1. DIANEAL [Suspect]
     Indication: PERITONEAL DIALYSIS
     Route: 033
     Dates: start: 20120507
  2. DIANEAL [Suspect]
     Route: 033
     Dates: start: 20120507
  3. DIANEAL [Suspect]
     Route: 033
     Dates: end: 20120702
  4. DIANEAL [Suspect]
     Route: 033
     Dates: start: 20120507, end: 20120702

REACTIONS (1)
  - LOCALISED INTRAABDOMINAL FLUID COLLECTION [None]
